FAERS Safety Report 8923245 (Version 1)
Quarter: 2012Q4

REPORT INFORMATION
  Report Type: Spontaneous
  Country: JP (occurrence: None)
  Receive Date: 20121115
  Receipt Date: 20121115
  Transmission Date: 20130627
  Serious: Yes (Hospitalization)
  Sender: FDA-Public Use
  Company Number: TPA2012A09023

PATIENT
  Sex: Male

DRUGS (11)
  1. FEBURIC (FEBUXOSTAT) [Suspect]
     Indication: HYPERURICAEMIA
     Route: 048
     Dates: start: 20120517, end: 20120620
  2. FEBURIC (FEBUXOSTAT) [Suspect]
     Indication: HYPERURICAEMIA
     Route: 048
     Dates: start: 20120621, end: 20120718
  3. FEBURIC (FEBUXOSTAT) [Suspect]
     Indication: HYPERURICAEMIA
     Route: 048
     Dates: start: 20120719, end: 20120927
  4. TAKEPRON(LANSOPRAZOLE) [Concomitant]
  5. BAYASPIRIN(ACETYLSALICYLIC ACID) [Concomitant]
  6. CRESTOR (ROSUVASTATIN CALCIUM) [Concomitant]
  7. OLMETEC (OLMESARTAN MEDOXOMIL) [Concomitant]
  8. FUROSEMIDE (FUROSEMIDE) [Concomitant]
  9. ALDACTONE A (SPIRONOLACTONE) [Concomitant]
  10. ARTIST (CARVEDILOL) [Concomitant]
  11. SIGMART (NICORANDIL) [Concomitant]

REACTIONS (3)
  - Hyperkalaemia [None]
  - Renal failure chronic [None]
  - Condition aggravated [None]
